FAERS Safety Report 16296153 (Version 14)
Quarter: 2021Q2

REPORT INFORMATION
  Report Type: Report from Study
  Country: None (occurrence: JP)
  Receive Date: 20190510
  Receipt Date: 20210615
  Transmission Date: 20210716
  Serious: Yes (Hospitalization)
  Sender: FDA-Public Use
  Company Number: JP-ABBVIE-19S-087-2736728-00

PATIENT
  Age: 71 Year
  Sex: Female
  Weight: 42 kg

DRUGS (32)
  1. DUODOPA [Suspect]
     Active Substance: CARBIDOPA\LEVODOPA
     Dosage: MD: 5 ML?CD: 2.5 ML/HR X 16 HRS?ED: 1.0 ML/UNIT
     Route: 050
     Dates: start: 20190314, end: 20190314
  2. DUODOPA [Suspect]
     Active Substance: CARBIDOPA\LEVODOPA
     Dosage: MD: 9 ML?CD: 2.6 ML/HR?ED: 1.0 ML/UNIT
     Route: 050
     Dates: start: 20190426, end: 20190426
  3. DUODOPA [Suspect]
     Active Substance: CARBIDOPA\LEVODOPA
     Dosage: MD: 9 ML?CD: 2.5 ML/HR?ED: 1.0 ML/UNIT
     Route: 050
     Dates: start: 20190527, end: 20190611
  4. DUODOPA [Suspect]
     Active Substance: CARBIDOPA\LEVODOPA
     Dosage: MD: 9 ML?CD: 2.2 ML/HR?ED: 1.0 ML/UNIT
     Route: 050
     Dates: start: 20190710, end: 20190721
  5. DUODOPA [Suspect]
     Active Substance: CARBIDOPA\LEVODOPA
     Dosage: MD: 9 ML?CD: 1.8 ML/HR?ED: 1.4 ML/UNIT
     Route: 050
     Dates: start: 20200121, end: 20200322
  6. NEUPRO [Suspect]
     Active Substance: ROTIGOTINE
     Indication: PARKINSON^S DISEASE
     Route: 062
     Dates: start: 20191015
  7. CYANOCOBALAMIN. [Concomitant]
     Active Substance: CYANOCOBALAMIN
     Indication: PROPHYLAXIS
     Route: 048
     Dates: start: 20190313
  8. DUODOPA [Suspect]
     Active Substance: CARBIDOPA\LEVODOPA
     Dosage: MD: 9 ML?CD: 2.8 ML/HR?ED: 1.0 ML/UNIT
     Route: 050
     Dates: start: 20190320, end: 20190323
  9. DUODOPA [Suspect]
     Active Substance: CARBIDOPA\LEVODOPA
     Dosage: MD: 9 ML?CD: 2.5 ML/HR?ED: 1.0 ML/UNIT
     Route: 050
     Dates: start: 20190418, end: 20190425
  10. DUODOPA [Suspect]
     Active Substance: CARBIDOPA\LEVODOPA
     Dosage: MD: 9 ML?CD: 2.4 ML/HR?ED: 1.0 ML/UNIT
     Route: 050
     Dates: start: 20190612, end: 20190625
  11. ELDECALCITOL [Concomitant]
     Active Substance: ELDECALCITOL
     Indication: PRODUCT USED FOR UNKNOWN INDICATION
     Route: 048
  12. CARBIDOPA MONOHYDRATE W/LEVODOPA [Concomitant]
     Active Substance: CARBIDOPA\LEVODOPA
     Indication: PARKINSON^S DISEASE
     Route: 048
     Dates: start: 20200323
  13. DUODOPA [Suspect]
     Active Substance: CARBIDOPA\LEVODOPA
     Dosage: MD: 9 ML?CD: 2.9 ML/HR?ED: 1.0 ML/UNIT
     Route: 050
     Dates: start: 20190324, end: 20190325
  14. DUODOPA [Suspect]
     Active Substance: CARBIDOPA\LEVODOPA
     Dosage: MD: 9 ML?CD: 2.0 ML/HR?ED: 1.0 ML/UNIT
     Route: 050
     Dates: start: 20190918, end: 20191111
  15. DUODOPA [Suspect]
     Active Substance: CARBIDOPA\LEVODOPA
     Dosage: MD: 9 ML?CD: 2.0 ML/HR?ED: 1.4 ML/UNIT
     Route: 050
     Dates: start: 20200330, end: 20200415
  16. DUODOPA [Suspect]
     Active Substance: CARBIDOPA\LEVODOPA
     Dosage: MD: 9 ML?CD: 2.1 ML/HR?ED: 1.4 ML/UNIT
     Route: 050
     Dates: start: 20200416
  17. BENFOTIAMINE [Concomitant]
     Active Substance: BENFOTIAMINE
     Indication: PROPHYLAXIS
     Route: 048
     Dates: start: 20190313
  18. ESOMEPRAZOLE MAGNESIUM. [Concomitant]
     Active Substance: ESOMEPRAZOLE MAGNESIUM
     Indication: PRODUCT USED FOR UNKNOWN INDICATION
     Route: 048
     Dates: start: 20191015
  19. DUODOPA [Suspect]
     Active Substance: CARBIDOPA\LEVODOPA
     Dosage: MD: 9 ML?CD: 2.7 ML/HR?ED: 1.0 ML/UNIT
     Route: 050
     Dates: start: 20190412, end: 20190417
  20. DUODOPA [Suspect]
     Active Substance: CARBIDOPA\LEVODOPA
     Route: 050
     Dates: start: 20191112, end: 20191217
  21. DUODOPA [Suspect]
     Active Substance: CARBIDOPA\LEVODOPA
     Dosage: MD: 9 ML?CD: 1.9 ML/HR?ED: 1.2 ML/UNIT
     Route: 050
     Dates: start: 20191218, end: 20200120
  22. PYRIDOXINE HYDROCHLORIDE. [Concomitant]
     Active Substance: PYRIDOXINE HYDROCHLORIDE
     Indication: PROPHYLAXIS
     Route: 048
     Dates: start: 20190313
  23. DUODOPA [Suspect]
     Active Substance: CARBIDOPA\LEVODOPA
     Indication: PARKINSON^S DISEASE
     Dosage: MD: 5 ML?CD: 1.9 ML/HR X 16 HRS?ED: 1.0 ML/UNIT X 2
     Route: 050
     Dates: start: 20190312, end: 20190313
  24. DUODOPA [Suspect]
     Active Substance: CARBIDOPA\LEVODOPA
     Dosage: MD: 9 ML?CD: 2.3 ML/HR?ED: 1.0 ML/UNIT
     Route: 050
     Dates: start: 20190626, end: 20190709
  25. DUODOPA [Suspect]
     Active Substance: CARBIDOPA\LEVODOPA
     Dosage: MD: 9 ML?CD: 2.1 ML/HR?ED: 1.0 ML/UNIT
     Route: 050
     Dates: start: 20190722, end: 20190917
  26. DUODOPA [Suspect]
     Active Substance: CARBIDOPA\LEVODOPA
     Dosage: MD: 5 ML?CD: 3.0 ML/HR X 16 HRS?ED: 1.0 ML/UNIT X 5
     Route: 050
     Dates: start: 20190318, end: 20190318
  27. DUODOPA [Suspect]
     Active Substance: CARBIDOPA\LEVODOPA
     Dosage: MD: 9 ML?CD: 3.0 ML/HR?ED: 1.0 ML/UNIT
     Route: 050
     Dates: start: 20190327, end: 20190411
  28. ENTACAPONE. [Concomitant]
     Active Substance: ENTACAPONE
     Indication: PARKINSON^S DISEASE
     Route: 048
     Dates: start: 20200323
  29. DUODOPA [Suspect]
     Active Substance: CARBIDOPA\LEVODOPA
     Dosage: MD: 5 ML?CD: 3.1 ML/HR X 16 HRS?ED: 1.0 ML/UNIT
     Route: 050
     Dates: start: 20190315, end: 20190317
  30. DUODOPA [Suspect]
     Active Substance: CARBIDOPA\LEVODOPA
     Dosage: MD: 5 ML?CD: 2.9 ML/HR X 16 HRS?ED: 1.0 ML/UNIT
     Route: 050
     Dates: start: 20190319, end: 20190319
  31. DUODOPA [Suspect]
     Active Substance: CARBIDOPA\LEVODOPA
     Dosage: MD: 9 ML?CD: 1.9 ML/HR?ED: 1.4 ML/UNIT
     Route: 050
     Dates: start: 20200323, end: 20200329
  32. MAGNESIUM OXIDE. [Concomitant]
     Active Substance: MAGNESIUM OXIDE
     Indication: PRODUCT USED FOR UNKNOWN INDICATION
     Route: 048

REACTIONS (18)
  - Blood iron decreased [Unknown]
  - Haematemesis [Unknown]
  - Malaise [Unknown]
  - Abdominal discomfort [Unknown]
  - Palpitations [Unknown]
  - Gastric ulcer [Recovering/Resolving]
  - Back pain [Not Recovered/Not Resolved]
  - Asthenia [Unknown]
  - Hypophagia [Recovering/Resolving]
  - Stress [Unknown]
  - Chest discomfort [Unknown]
  - Nausea [Unknown]
  - Dyskinesia [Not Recovered/Not Resolved]
  - Anaemia [Recovered/Resolved]
  - Stoma site erythema [Not Recovered/Not Resolved]
  - Stoma site discharge [Not Recovered/Not Resolved]
  - Drug ineffective [Unknown]
  - On and off phenomenon [Not Recovered/Not Resolved]

NARRATIVE: CASE EVENT DATE: 2019
